FAERS Safety Report 4740788-3 (Version None)
Quarter: 2005Q3

REPORT INFORMATION
  Report Type: 
  Country: None (occurrence: None)
  Receive Date: 20050808
  Receipt Date: 20050727
  Transmission Date: 20060218
  Serious: Yes (Hospitalization, Other)
  Sender: FDA-Public Use
  Company Number: USA0507104060

PATIENT
  Sex: Female

DRUGS (2)
  1. HUMULIN-HUMAN INSULIN (RDNA): 3% REGULAR, 70% NPH [Suspect]
     Dates: start: 19920101
  2. ACTOS [Concomitant]

REACTIONS (2)
  - CATARACT [None]
  - GASTRIC CANCER [None]
